FAERS Safety Report 24872156 (Version 1)
Quarter: 2025Q1

REPORT INFORMATION
  Report Type: Spontaneous
  Country: ES (occurrence: ES)
  Receive Date: 20250122
  Receipt Date: 20250122
  Transmission Date: 20250409
  Serious: Yes (Hospitalization, Other)
  Sender: AMGEN
  Company Number: ES-AMGEN-ESPSP2025009947

PATIENT
  Age: 46 Year
  Sex: Female

DRUGS (6)
  1. ADALIMUMAB [Suspect]
     Active Substance: ADALIMUMAB
     Indication: Rheumatoid arthritis
     Route: 065
  2. ETANERCEPT [Suspect]
     Active Substance: ETANERCEPT
     Indication: Rheumatoid arthritis
     Route: 065
  3. RITUXIMAB [Suspect]
     Active Substance: RITUXIMAB
     Indication: Felty^s syndrome
     Dosage: UNK, Q6MO (BIANNUAL)
     Route: 040
  4. RITUXIMAB [Suspect]
     Active Substance: RITUXIMAB
     Route: 040
  5. RITUXIMAB [Suspect]
     Active Substance: RITUXIMAB
     Route: 040
     Dates: start: 202403
  6. PREDNISONE [Concomitant]
     Active Substance: PREDNISONE
     Indication: Rheumatoid arthritis
     Dosage: 1.25 TO 5 MG, QD (LOW DOSES)
     Route: 065

REACTIONS (13)
  - Rheumatoid arthritis [Unknown]
  - Neutropenia [Unknown]
  - Epistaxis [Unknown]
  - Lymphopenia [Unknown]
  - Pancytopenia [Unknown]
  - Anaemia [Recovering/Resolving]
  - Thrombocytopenia [Recovering/Resolving]
  - Upper respiratory tract infection [Unknown]
  - Pyrexia [Unknown]
  - Drug intolerance [Unknown]
  - Drug ineffective [Unknown]
  - Splenomegaly [Unknown]
  - Treatment noncompliance [Unknown]
